FAERS Safety Report 5026071-X (Version None)
Quarter: 2006Q2

REPORT INFORMATION
  Report Type: 
  Country: None (occurrence: None)
  Receive Date: 20060612
  Receipt Date: 20060612
  Transmission Date: 20061013
  Serious: No
  Sender: FDA-Public Use
  Company Number: None

PATIENT
  Age: 58 Year
  Sex: Female
  Weight: 85.2762 kg

DRUGS (1)
  1. LEVAQUIN [Suspect]
     Indication: URINARY TRACT INFECTION
     Dosage: 500 MG TWICE /DAY PO
     Route: 048
     Dates: start: 20060515, end: 20060522

REACTIONS (7)
  - ACTIVITIES OF DAILY LIVING IMPAIRED [None]
  - ARTHRALGIA [None]
  - DIFFICULTY IN WALKING [None]
  - IMPAIRED WORK ABILITY [None]
  - INSOMNIA [None]
  - JOINT SWELLING [None]
  - MYALGIA [None]
